FAERS Safety Report 8052896 (Version 15)
Quarter: 2013Q1

REPORT INFORMATION
  Report Type: Spontaneous
  Country: US (occurrence: US)
  Receive Date: 20110725
  Receipt Date: 20130320
  Transmission Date: 20140127
  Serious: Yes (Hospitalization, Congenital Anomaly, Other)
  Sender: FDA-Public Use
  Company Number: US-PFIZER INC-2011104755

PATIENT
  Sex: Male
  Weight: 3.6 kg

DRUGS (10)
  1. ZOLOFT [Suspect]
     Indication: DEPRESSION
     Dosage: 100 MG, 1X/DAY
     Route: 064
     Dates: start: 19990520
  2. ZOLOFT [Suspect]
     Indication: DEPRESSION
     Dosage: 100 MG, 1X/DAY
     Route: 064
     Dates: start: 1998, end: 200102
  3. SYNTHROID [Concomitant]
     Indication: HYPOTHYROIDISM
     Dosage: 100 UG, UNK
     Route: 064
     Dates: start: 20000229
  4. PRENATAL VITAMINS [Concomitant]
     Dosage: UNK
     Route: 064
     Dates: start: 20000119
  5. TYLENOL [Concomitant]
     Indication: PAIN
     Dosage: 1000 MG, UNK
     Route: 064
     Dates: start: 20000828
  6. MACROBID [Concomitant]
     Dosage: 100 MG, UNK
     Route: 064
     Dates: start: 20000222
  7. LEVOXYL [Concomitant]
     Dosage: UNK
     Route: 064
  8. LEVOTHYROXINE SODIUM [Concomitant]
     Dosage: 100 UG, UNK
     Route: 064
     Dates: start: 19991118
  9. SENOKOT [Concomitant]
     Indication: CONSTIPATION
     Dosage: UNK
     Route: 064
     Dates: start: 20000828
  10. SECONAL [Concomitant]
     Indication: SLEEP DISORDER
     Dosage: 100 MG, UNK
     Route: 064
     Dates: start: 20000828

REACTIONS (16)
  - Foetal exposure during pregnancy [Unknown]
  - Anal atresia [Recovered/Resolved]
  - Chordee [Recovered/Resolved]
  - Peyronie^s disease [Unknown]
  - Vesicoureteric reflux [Recovering/Resolving]
  - Pulmonary valve stenosis congenital [Unknown]
  - Patent ductus arteriosus [Unknown]
  - VACTERL syndrome [Unknown]
  - Atrial septal defect [Unknown]
  - Atrial septal defect [Unknown]
  - Hypospadias [Unknown]
  - Congenital anomaly [Unknown]
  - Renal cyst [Unknown]
  - Defect conduction intraventricular [Unknown]
  - Renal impairment [Unknown]
  - Faecal incontinence [Not Recovered/Not Resolved]
